FAERS Safety Report 11190736 (Version 1)
Quarter: 2015Q2

REPORT INFORMATION
  Report Type: Spontaneous
  Country: US (occurrence: US)
  Receive Date: 20150615
  Receipt Date: 20150615
  Transmission Date: 20150821
  Serious: No
  Sender: FDA-Public Use
  Company Number: US-PFIZER INC-2015197328

PATIENT
  Sex: Female

DRUGS (7)
  1. SODIUM SULAMYD [Suspect]
     Active Substance: SULFACETAMIDE SODIUM
  2. ILOSONE [Suspect]
     Active Substance: ERYTHROMYCIN ESTOLATE
  3. AMOXICILLIN. [Suspect]
     Active Substance: AMOXICILLIN
  4. FENTANYL. [Suspect]
     Active Substance: FENTANYL
  5. SULFAMETHOXAZOLE/TRIMETHOPRIM [Suspect]
     Active Substance: SULFAMETHOXAZOLE\TRIMETHOPRIM
  6. BLEPH-10 [Suspect]
     Active Substance: SULFACETAMIDE SODIUM
  7. CODEINE [Suspect]
     Active Substance: CODEINE

REACTIONS (1)
  - Drug hypersensitivity [Unknown]
